FAERS Safety Report 6419188-6 (Version None)
Quarter: 2009Q4

REPORT INFORMATION
  Report Type: 
  Country: None (occurrence: None)
  Receive Date: 20091029
  Receipt Date: 20091016
  Transmission Date: 20100525
  Serious: Yes (Hospitalization, Other)
  Sender: FDA-Public Use
  Company Number: PHHY2009IE30070

PATIENT
  Sex: Male

DRUGS (2)
  1. CLOZARIL [Suspect]
     Indication: SCHIZOPHRENIA
     Dosage: UNK
     Dates: start: 20040608
  2. PRIADEL [Concomitant]
     Indication: AFFECTIVE DISORDER
     Dosage: 400 MG, QHS
     Route: 048

REACTIONS (5)
  - INTENTIONAL SELF-INJURY [None]
  - LIGAMENT INJURY [None]
  - MENTAL IMPAIRMENT [None]
  - NEUTROPENIA [None]
  - WHITE BLOOD CELL COUNT DECREASED [None]
